FAERS Safety Report 8474910 (Version 4)
Quarter: 2013Q3

REPORT INFORMATION
  Report Type: Spontaneous
  Country: GB (occurrence: GB)
  Receive Date: 20120323
  Receipt Date: 20130813
  Transmission Date: 20140515
  Serious: Yes (Death, Hospitalization)
  Sender: FDA-Public Use
  Company Number: GB-AMGEN-GBRCT2012017426

PATIENT
  Age: 64 Year
  Sex: Male

DRUGS (10)
  1. PANITUMUMAB [Suspect]
     Indication: GASTROOESOPHAGEAL CANCER
     Dosage: 9 MG/KG, Q3WK
     Route: 042
     Dates: start: 20100617, end: 20100622
  2. EPIRUBICIN [Concomitant]
     Indication: GASTROOESOPHAGEAL CANCER
     Dosage: 50 MG/M2, UNK
     Route: 042
     Dates: start: 20100617, end: 20100622
  3. OXALIPLATIN [Concomitant]
     Indication: GASTROOESOPHAGEAL CANCER
     Dosage: 100 MG/M2, UNK
     Route: 042
     Dates: start: 20100617, end: 20100622
  4. CAPECITABINE [Concomitant]
     Indication: GASTROOESOPHAGEAL CANCER
     Dosage: 1000 MG/M2, UNK
     Route: 048
     Dates: start: 20100617, end: 20100622
  5. METFORMIN [Concomitant]
     Indication: DIABETES MELLITUS
     Dosage: 500 MG, BID
     Dates: start: 2009
  6. AMLODIPINE [Concomitant]
     Indication: HYPERTENSION
     Dosage: 5 MG, UNK
     Dates: start: 2008
  7. ATENOLOL [Concomitant]
     Indication: HYPERTENSION
     Dosage: 50 MG, UNK
     Dates: start: 2008
  8. LANSOPRAZOLE [Concomitant]
     Dosage: 30 MG, QD
     Dates: start: 20100605
  9. MOVICOL [Concomitant]
     Indication: CONSTIPATION
     Dosage: UNK
     Dates: start: 201006
  10. DEXAMETHASONE [Concomitant]
     Dosage: UNK
     Dates: start: 20100624

REACTIONS (2)
  - Pulmonary embolism [Fatal]
  - Drug interaction [Unknown]
